FAERS Safety Report 15439649 (Version 1)
Quarter: 2018Q3

REPORT INFORMATION
  Report Type: Other
  Country: GB (occurrence: GB)
  Receive Date: 20180928
  Receipt Date: 20180928
  Transmission Date: 20181010
  Serious: Yes (Life-Threatening, Hospitalization, Other)
  Sender: FDA-Public Use
  Company Number: GB-COVIS PHARMA B.V.-2018COV03793

PATIENT
  Age: 67 Year
  Sex: Female

DRUGS (10)
  1. PROMETHAZINE [Suspect]
     Active Substance: PROMETHAZINE\PROMETHAZINE HYDROCHLORIDE
     Dosage: 10 MG, 2X/DAY
     Dates: start: 20120112, end: 20180113
  2. SPIRONOLACTONE. [Concomitant]
     Active Substance: SPIRONOLACTONE
  3. PERINDOPRIL [Concomitant]
     Active Substance: PERINDOPRIL
  4. BISOPROLOL [Concomitant]
     Active Substance: BISOPROLOL
     Dosage: 2.5 MG
  5. OMEPRAZOLE MAGNESIUM. [Suspect]
     Active Substance: OMEPRAZOLE MAGNESIUM
     Dosage: 2 DOSAGE UNITS, 1X/DAY
     Route: 048
  6. FUROSEMIDE. [Concomitant]
     Active Substance: FUROSEMIDE
     Dosage: 40 MG
  7. ZIMOVANE [Concomitant]
     Active Substance: ZOPICLONE
     Dosage: 2 DOSAGE UNITS, 1X/DAY
     Dates: start: 201801
  8. PROMETHAZINE [Suspect]
     Active Substance: PROMETHAZINE\PROMETHAZINE HYDROCHLORIDE
     Indication: INSOMNIA
     Dosage: 10 MG, 1X/DAY
     Dates: start: 20120112, end: 20180113
  9. IVABRADINE [Concomitant]
     Active Substance: IVABRADINE
     Dosage: 5 MG
  10. ZIMOVANE [Concomitant]
     Active Substance: ZOPICLONE
     Dosage: 4 DOSAGE UNITS, 1X/DAY
     Dates: start: 201801

REACTIONS (26)
  - Fear [Recovering/Resolving]
  - Suicidal ideation [Unknown]
  - Dizziness [Recovered/Resolved]
  - Unevaluable event [Recovered/Resolved]
  - Mental disorder [Recovering/Resolving]
  - Cardiac disorder [Recovered/Resolved]
  - Syncope [Recovered/Resolved]
  - Palpitations [Recovering/Resolving]
  - Memory impairment [Recovering/Resolving]
  - Hot flush [Recovered/Resolved]
  - Dysuria [Recovered/Resolved]
  - Confusional state [Recovered/Resolved]
  - Tremor [Unknown]
  - Psychiatric symptom [Recovering/Resolving]
  - Hypoaesthesia [Unknown]
  - Decreased appetite [Recovered/Resolved]
  - Vision blurred [Recovered/Resolved]
  - Heart rate increased [Recovered/Resolved]
  - Disorientation [Recovered/Resolved]
  - Dry mouth [Recovered/Resolved]
  - Photosensitivity reaction [Recovered/Resolved]
  - Disturbance in attention [Recovering/Resolving]
  - Restlessness [Recovered/Resolved]
  - Eye disorder [Recovering/Resolving]
  - Nightmare [Recovered/Resolved]
  - Malaise [Recovered/Resolved]

NARRATIVE: CASE EVENT DATE: 2018
